FAERS Safety Report 16444387 (Version 1)
Quarter: 2019Q2

REPORT INFORMATION
  Report Type: Spontaneous
  Country: DE (occurrence: DE)
  Receive Date: 20190618
  Receipt Date: 20190618
  Transmission Date: 20190711
  Serious: Yes (Death, Life-Threatening, Hospitalization, Other)
  Sender: FDA-Public Use
  Company Number: DE-TORRENT-00014278

PATIENT
  Age: 75 Year
  Sex: Male

DRUGS (2)
  1. ESOMEPRAZOLE. [Interacting]
     Active Substance: ESOMEPRAZOLE MAGNESIUM
     Indication: GASTROOESOPHAGEAL REFLUX DISEASE
  2. PIRFENIDONE. [Suspect]
     Active Substance: PIRFENIDONE
     Indication: IDIOPATHIC PULMONARY FIBROSIS
     Dosage: PAUSED THE TREATMENT FOR 2 WEEKS

REACTIONS (7)
  - Escherichia infection [Fatal]
  - Sepsis [Fatal]
  - Drug-induced liver injury [Unknown]
  - Drug interaction [Unknown]
  - Multiple organ dysfunction syndrome [Fatal]
  - Lactic acidosis [Fatal]
  - Acute hepatic failure [Unknown]
